FAERS Safety Report 5728343-X (Version None)
Quarter: 2008Q2

REPORT INFORMATION
  Report Type: 
  Country: None (occurrence: None)
  Receive Date: 20080506
  Receipt Date: 20080425
  Transmission Date: 20081010
  Serious: Yes (Other)
  Sender: FDA-Public Use
  Company Number: PHEH2008US04089

PATIENT
  Age: 79 Year
  Sex: Female
  Weight: 48.072 kg

DRUGS (5)
  1. VELCADE [Concomitant]
  2. DOXIL [Concomitant]
  3. DEXAMETHASONE [Concomitant]
     Dates: start: 20061001
  4. ZOMETA [Suspect]
     Dosage: 4 MG MONTHLY
     Dates: start: 20021002, end: 20061006
  5. AREDIA [Suspect]
     Dates: start: 20010501, end: 20020901

REACTIONS (5)
  - BONE LESION [None]
  - IMPAIRED HEALING [None]
  - OSTEONECROSIS [None]
  - TOOTH DISORDER [None]
  - TOOTH EXTRACTION [None]
